FAERS Safety Report 18274216 (Version 3)
Quarter: 2020Q4

REPORT INFORMATION
  Report Type: Report from Study
  Country: VN (occurrence: VN)
  Receive Date: 20200916
  Receipt Date: 20201014
  Transmission Date: 20210113
  Serious: Yes (Other)
  Sender: FDA-Public Use
  Company Number: VN-JNJFOC-20200914332

PATIENT
  Age: 68 Year
  Sex: Female

DRUGS (1)
  1. SIMPONI [Suspect]
     Active Substance: GOLIMUMAB
     Indication: RHEUMATOID ARTHRITIS
     Route: 058
     Dates: start: 20200729

REACTIONS (2)
  - Vocal cord polyp [Not Recovered/Not Resolved]
  - Chronic tonsillitis [Not Recovered/Not Resolved]

NARRATIVE: CASE EVENT DATE: 20200826
